FAERS Safety Report 4666720-9 (Version None)
Quarter: 2005Q2

REPORT INFORMATION
  Report Type: 
  Country: None (occurrence: None)
  Receive Date: 20050519
  Receipt Date: 20040218
  Transmission Date: 20051028
  Serious: Yes (Other)
  Sender: FDA-Public Use
  Company Number: PHEH2004US02126

PATIENT
  Age: 67 Year
  Sex: Female

DRUGS (12)
  1. AREDIA [Suspect]
     Indication: MULTIPLE MYELOMA
     Dosage: 90 MG, QMO
     Route: 042
     Dates: start: 19950101, end: 20040120
  2. MELPHALAN [Concomitant]
     Dosage: 4 DAYS/QMOS
     Dates: start: 19980801, end: 19990501
  3. PREDNISONE TAB [Concomitant]
     Dosage: 4 DAYS/QMOS
     Dates: start: 19980801, end: 19990501
  4. TOPROL-XL [Concomitant]
     Dosage: 100 MG, QD
  5. CATAPRES [Concomitant]
  6. COZAAR [Concomitant]
  7. NORVASC [Concomitant]
  8. FUROSEMIDE [Concomitant]
  9. SYNTHROID [Concomitant]
  10. THALIDOMIDE [Concomitant]
     Dosage: 50 MG, QD
     Dates: start: 19990601, end: 20000101
  11. THALIDOMIDE [Concomitant]
     Dosage: 100 MG, QD
     Dates: start: 20000101
  12. PROTONIX [Concomitant]
     Dosage: 40 MG, QD

REACTIONS (4)
  - DENTAL OPERATION [None]
  - ORAL SURGERY [None]
  - OSTEONECROSIS [None]
  - TOOTH ABSCESS [None]
